FAERS Safety Report 4737292-5 (Version None)
Quarter: 2005Q3

REPORT INFORMATION
  Report Type: 
  Country: None (occurrence: None)
  Receive Date: 20050728
  Receipt Date: 20050502
  Transmission Date: 20060218
  Serious: No
  Sender: FDA-Public Use
  Company Number: 200512638US

PATIENT
  Sex: Female

DRUGS (1)
  1. KETEK [Suspect]
     Dosage: 800 MG QD PO
     Route: 048
     Dates: start: 20050307, end: 20050307

REACTIONS (1)
  - NASOPHARYNGITIS [None]
